FAERS Safety Report 14187720 (Version 1)
Quarter: 2017Q4

REPORT INFORMATION
  Report Type: Spontaneous
  Country: US (occurrence: US)
  Receive Date: 20171114
  Receipt Date: 20171114
  Transmission Date: 20180321
  Serious: No
  Sender: FDA-Public Use
  Company Number: US-BAUSCH-SYM-2013-12149

PATIENT

DRUGS (4)
  1. NU-DERM CLEAR [Suspect]
     Active Substance: HYDROQUINONE
     Indication: PRODUCT USED FOR UNKNOWN INDICATION
     Route: 061
  2. NU-DERM BLENDER [Suspect]
     Active Substance: HYDROQUINONE
     Indication: PRODUCT USED FOR UNKNOWN INDICATION
     Route: 061
  3. NU-DERM HYDRATE [Suspect]
     Active Substance: COSMETICS
     Indication: PRODUCT USED FOR UNKNOWN INDICATION
     Route: 061
  4. RETIN-A [Suspect]
     Active Substance: TRETINOIN
     Indication: PRODUCT USED FOR UNKNOWN INDICATION
     Route: 061

REACTIONS (3)
  - Ocular hyperaemia [Unknown]
  - Ocular icterus [Unknown]
  - Eye irritation [Unknown]
